FAERS Safety Report 15253449 (Version 1)
Quarter: 2018Q3

REPORT INFORMATION
  Report Type: Spontaneous
  Country: US (occurrence: US)
  Receive Date: 20180808
  Receipt Date: 20180808
  Transmission Date: 20181010
  Serious: No
  Sender: FDA-Public Use
  Company Number: US-ASTRAZENECA-2018SE93624

PATIENT
  Age: 33 Year
  Sex: Male
  Weight: 73 kg

DRUGS (2)
  1. SYMBICORT [Suspect]
     Active Substance: BUDESONIDE\FORMOTEROL FUMARATE DIHYDRATE
     Indication: ASTHMA
     Dosage: 160/4.5MCG 2 PUFFS, TWO TIMES A DAY
     Route: 055
     Dates: start: 2006
  2. SYMBICORT [Suspect]
     Active Substance: BUDESONIDE\FORMOTEROL FUMARATE DIHYDRATE
     Indication: ASTHMA
     Dosage: 160/4.5 MCG/DOSE, 1 PUFF TWO TIMES A DAY
     Route: 055
     Dates: start: 20180717

REACTIONS (7)
  - Sinusitis [Recovering/Resolving]
  - Device malfunction [Unknown]
  - Wrong technique in device usage process [Unknown]
  - Polyp [Recovering/Resolving]
  - Asthma [Recovering/Resolving]
  - Circumstance or information capable of leading to medication error [Recovered/Resolved]
  - Intentional product misuse [Unknown]

NARRATIVE: CASE EVENT DATE: 2006
